FAERS Safety Report 6906053-0 (Version None)
Quarter: 2010Q3

REPORT INFORMATION
  Report Type: 
  Country: None (occurrence: None)
  Receive Date: 20100803
  Receipt Date: 20100803
  Transmission Date: 20110219
  Serious: Yes (Hospitalization)
  Sender: FDA-Public Use
  Company Number: None

PATIENT
  Age: 81 Year
  Sex: Male
  Weight: 76.9 kg

DRUGS (1)
  1. METOPROLOL [Suspect]
     Indication: HYPERTENSION
     Dosage: 50 MG EVERY DAY PO
     Route: 048
     Dates: start: 20070607, end: 20100427

REACTIONS (6)
  - BALANCE DISORDER [None]
  - BRADYCARDIA [None]
  - DIZZINESS [None]
  - FALL [None]
  - HYPOVOLAEMIA [None]
  - SUDDEN DEATH [None]
